FAERS Safety Report 15745416 (Version 1)
Quarter: 2018Q4

REPORT INFORMATION
  Report Type: Spontaneous
  Country: US (occurrence: US)
  Receive Date: 20181220
  Receipt Date: 20181220
  Transmission Date: 20190205
  Serious: No
  Sender: FDA-Public Use
  Company Number: PHEH2018US053657

PATIENT
  Sex: Female

DRUGS (1)
  1. AMANTADINE SANDOZ [Suspect]
     Active Substance: AMANTADINE
     Indication: PRODUCT USED FOR UNKNOWN INDICATION
     Dosage: 2 DF, QD (PILLS)
     Route: 065
     Dates: start: 201610

REACTIONS (3)
  - Affective disorder [Unknown]
  - Thinking abnormal [Unknown]
  - Dyskinesia [Unknown]
